FAERS Safety Report 9326321 (Version 1)
Quarter: 2013Q2

REPORT INFORMATION
  Report Type: Spontaneous
  Country: US (occurrence: None)
  Receive Date: 20130603
  Receipt Date: 20130603
  Transmission Date: 20140414
  Serious: No
  Sender: FDA-Public Use
  Company Number: None

PATIENT
  Age: 47 Year
  Sex: Female
  Weight: 42.8 kg

DRUGS (1)
  1. CISPLATIN [Suspect]
     Dates: start: 20130502

REACTIONS (3)
  - Neutropenia [None]
  - White blood cell count decreased [None]
  - Lymphocyte count decreased [None]
